FAERS Safety Report 6978850-7 (Version None)
Quarter: 2010Q3

REPORT INFORMATION
  Report Type: 
  Country: None (occurrence: None)
  Receive Date: 20100908
  Receipt Date: 20100827
  Transmission Date: 20110219
  Serious: Yes (Other)
  Sender: FDA-Public Use
  Company Number: 2010US003506

PATIENT
  Age: 57 Year
  Sex: Female

DRUGS (1)
  1. PROGRAF [Suspect]
     Indication: LIVER TRANSPLANT
     Dosage: 1 MG, /D
     Dates: start: 20050101

REACTIONS (6)
  - COORDINATION ABNORMAL [None]
  - DEMYELINATION [None]
  - FALL [None]
  - MEMORY IMPAIRMENT [None]
  - RIB FRACTURE [None]
  - TREMOR [None]
